FAERS Safety Report 6190757-4 (Version None)
Quarter: 2009Q2

REPORT INFORMATION
  Report Type: 
  Country: None (occurrence: None)
  Receive Date: 20090513
  Receipt Date: 20090513
  Transmission Date: 20091009
  Serious: Yes (Hospitalization)
  Sender: FDA-Public Use
  Company Number: None

PATIENT
  Sex: Female
  Weight: 95.2554 kg

DRUGS (1)
  1. AMBIEN CR [Suspect]
     Indication: INSOMNIA
     Dosage: 12.5 MG Q HS PO
     Route: 048
     Dates: start: 20081210, end: 20090228

REACTIONS (7)
  - ABNORMAL SLEEP-RELATED EVENT [None]
  - ALCOHOL USE [None]
  - AMNESIA [None]
  - DYSARTHRIA [None]
  - REFUSAL OF TREATMENT BY PATIENT [None]
  - STRESS [None]
  - VISUAL IMPAIRMENT [None]
